FAERS Safety Report 9096755 (Version 2)
Quarter: 2013Q1

REPORT INFORMATION
  Report Type: Spontaneous
  Country: US (occurrence: US)
  Receive Date: 20130211
  Receipt Date: 20130219
  Transmission Date: 20140127
  Serious: Yes (Hospitalization, Other)
  Sender: FDA-Public Use
  Company Number: US-PFIZER INC-2013054986

PATIENT
  Age: 57 Year
  Sex: Male
  Weight: 84 kg

DRUGS (6)
  1. PROTONIX [Suspect]
     Indication: GASTROOESOPHAGEAL REFLUX DISEASE
     Dosage: 40 MG, 1X/DAY
     Route: 048
  2. NIASPAN [Concomitant]
     Dosage: UNK
  3. PRAVASTATIN [Concomitant]
     Dosage: 20 MG, UNK
  4. BABY ASPIRIN [Concomitant]
     Dosage: UNK
  5. FISH OIL [Concomitant]
     Dosage: UNK
  6. CARDURA [Concomitant]
     Indication: HYPERTENSION
     Dosage: UNK, 2X/DAY

REACTIONS (2)
  - Pulmonary mass [Unknown]
  - Staphylococcal infection [Unknown]
